FAERS Safety Report 12494191 (Version 2)
Quarter: 2016Q3

REPORT INFORMATION
  Report Type: Spontaneous
  Country: US (occurrence: US)
  Receive Date: 20160623
  Receipt Date: 20160722
  Transmission Date: 20161109
  Serious: No
  Sender: FDA-Public Use
  Company Number: US-ACTELION-A-US2016-138071

PATIENT
  Age: 58 Year
  Sex: Male

DRUGS (15)
  1. ASPIRIN. [Concomitant]
     Active Substance: ASPIRIN
  2. GLYBURIDE. [Concomitant]
     Active Substance: GLYBURIDE
  3. LISINOPRIL. [Concomitant]
     Active Substance: LISINOPRIL
  4. TESTOSTERONE. [Concomitant]
     Active Substance: TESTOSTERONE
  5. ALPRAZOLAM. [Concomitant]
     Active Substance: ALPRAZOLAM
  6. FLAXSEED [Concomitant]
     Active Substance: FLAX SEED
  7. MULTIVITAMIN [Concomitant]
     Active Substance: VITAMINS
  8. FLUTICASONE [Concomitant]
     Active Substance: FLUTICASONE\FLUTICASONE PROPIONATE
  9. ALEVE [Concomitant]
     Active Substance: NAPROXEN SODIUM
  10. VALCHLOR [Suspect]
     Active Substance: MECHLORETHAMINE
     Indication: MYCOSIS FUNGOIDES
     Dosage: UNK
     Route: 061
  11. ZOLPIDEM [Concomitant]
     Active Substance: ZOLPIDEM\ZOLPIDEM TARTRATE
  12. MONASCUS PURPUREUS [Concomitant]
     Active Substance: RED YEAST
  13. PROBIOTIC [Concomitant]
     Active Substance: PROBIOTICS NOS
  14. JANUVIA [Concomitant]
     Active Substance: SITAGLIPTIN PHOSPHATE
  15. METFORMIN [Concomitant]
     Active Substance: METFORMIN HYDROCHLORIDE

REACTIONS (4)
  - Application site haemorrhage [Unknown]
  - Application site pain [Unknown]
  - Application site erosion [Unknown]
  - Blister [Unknown]
